FAERS Safety Report 6401740-5 (Version None)
Quarter: 2009Q4

REPORT INFORMATION
  Report Type: 
  Country: None (occurrence: None)
  Receive Date: 20091013
  Receipt Date: 20091013
  Transmission Date: 20100525
  Serious: Yes (Hospitalization)
  Sender: FDA-Public Use
  Company Number: None

PATIENT
  Sex: Male
  Weight: 94.2 kg

DRUGS (9)
  1. CRESTOR [Suspect]
     Dosage: 20 MG QD PO
     Route: 048
     Dates: start: 20091005, end: 20091007
  2. CASODEX [Concomitant]
  3. GLIPIZIDE [Concomitant]
  4. ISOSORBIDE [Concomitant]
  5. SPIRONOLACTONE [Concomitant]
  6. COREG CR [Concomitant]
  7. POTASSIUM CHLORIDE [Concomitant]
  8. TELMISARTAN/HCTZ [Concomitant]
  9. LASIX [Concomitant]

REACTIONS (4)
  - GAIT DISTURBANCE [None]
  - MUSCULAR WEAKNESS [None]
  - MUSCULOSKELETAL DISCOMFORT [None]
  - PAIN IN EXTREMITY [None]
